FAERS Safety Report 8817575 (Version 1)
Quarter: 2012Q4

REPORT INFORMATION
  Report Type: 
  Country: GB (occurrence: GB)
  Receive Date: 20121001
  Receipt Date: 20121001
  Transmission Date: 20130627
  Serious: Yes (Death, Other)
  Sender: FDA-Public Use
  Company Number: GB-B.I. PHARMACEUTICALS,INC./RIDGEFIELD-2012-UK-01282UK

PATIENT
  Age: 76 Year
  Sex: Female
  Weight: 99 kg

DRUGS (9)
  1. SPIRIVA [Suspect]
     Indication: CHRONIC OBSTRUCTIVE PULMONARY DISEASE
     Route: 055
     Dates: start: 20120829
  2. ASPIRIN [Concomitant]
     Dates: start: 20120525
  3. CLENIL MODULITE [Concomitant]
     Dates: start: 20120525
  4. FUROSEMIDE [Concomitant]
     Dates: start: 20120525
  5. INDAPAMIDE [Concomitant]
     Dates: start: 20120525
  6. OILATUM [Concomitant]
     Dates: start: 20120823, end: 20120824
  7. SIMVASTATIN [Concomitant]
     Dates: start: 20120525
  8. VENTOLIN [Concomitant]
     Dates: start: 20120525
  9. VERAPAMIL HYDROCHLORIDE [Concomitant]
     Dates: start: 20120525

REACTIONS (1)
  - Death [Fatal]
